FAERS Safety Report 7449095-1 (Version None)
Quarter: 2011Q2

REPORT INFORMATION
  Report Type: 
  Country: None (occurrence: None)
  Receive Date: 20110502
  Receipt Date: 20100505
  Transmission Date: 20111010
  Serious: No
  Sender: FDA-Public Use
  Company Number: US-BAYER-201022262NA

PATIENT
  Sex: Female

DRUGS (1)
  1. YAZ [Suspect]

REACTIONS (4)
  - FATIGUE [None]
  - PREGNANCY ON ORAL CONTRACEPTIVE [None]
  - NAUSEA [None]
  - DIARRHOEA [None]
